FAERS Safety Report 21453236 (Version 1)
Quarter: 2022Q4

REPORT INFORMATION
  Report Type: Spontaneous
  Country: US (occurrence: None)
  Receive Date: 20221012
  Receipt Date: 20221012
  Transmission Date: 20230112
  Serious: Yes (Hospitalization)
  Sender: FDA-Public Use
  Company Number: None

PATIENT
  Sex: Female

DRUGS (1)
  1. OPSUMIT [Suspect]
     Active Substance: MACITENTAN
     Indication: Pulmonary arterial hypertension
     Dosage: 10MG DAILY ORAL
     Route: 048
     Dates: start: 20220405

REACTIONS (6)
  - Peripheral swelling [None]
  - Swelling face [None]
  - Weight fluctuation [None]
  - Dyspnoea [None]
  - Oxygen therapy [None]
  - Sensitivity to weather change [None]
